FAERS Safety Report 17675749 (Version 2)
Quarter: 2020Q2

REPORT INFORMATION
  Report Type: Spontaneous
  Country: IT (occurrence: IT)
  Receive Date: 20200416
  Receipt Date: 20200422
  Transmission Date: 20200714
  Serious: Yes (Hospitalization)
  Sender: FDA-Public Use
  Company Number: IT-TEVA-2020-IT-1224740

PATIENT
  Age: 72 Year
  Sex: Female

DRUGS (4)
  1. FM2 OIL (MAGISTRAL PREPARATION) (NABIXIMOLS) [Interacting]
     Active Substance: NABIXIMOLS
     Dosage: FORMULATION: OIL, FM2 OIL (MAGISTRAL PREPARATION)
     Route: 048
  2. AMITRIPTYLINE [Concomitant]
     Active Substance: AMITRIPTYLINE
     Route: 065
  3. PREGABALIN. [Suspect]
     Active Substance: PREGABALIN
     Route: 065
  4. FENTANYL. [Interacting]
     Active Substance: FENTANYL
     Route: 065

REACTIONS (4)
  - Syncope [Unknown]
  - Hypoxia [Unknown]
  - Sedation [Unknown]
  - Drug interaction [Unknown]
